FAERS Safety Report 8350906-6 (Version None)
Quarter: 2012Q2

REPORT INFORMATION
  Report Type: 
  Country: None (occurrence: None)
  Receive Date: 20120510
  Receipt Date: 20120507
  Transmission Date: 20120825
  Serious: Yes (Other)
  Sender: FDA-Public Use
  Company Number: US-PFIZER INC-2012068271

PATIENT
  Sex: Female
  Weight: 72.562 kg

DRUGS (4)
  1. DETROL LA [Suspect]
     Indication: HYPERTONIC BLADDER
     Dosage: 2 MG, 1X/DAY
     Route: 048
  2. ZOLOFT [Suspect]
     Indication: DEPRESSION
     Dosage: 50 MG, 1X/DAY
     Route: 048
  3. LOVAZA [Concomitant]
     Dosage: UNK
  4. LIPITOR [Suspect]
     Indication: BLOOD CHOLESTEROL INCREASED
     Dosage: 20 MG, 1X/DAY
     Route: 048

REACTIONS (2)
  - DEAFNESS [None]
  - HYPOACUSIS [None]
